FAERS Safety Report 12943584 (Version 1)
Quarter: 2016Q4

REPORT INFORMATION
  Report Type: Spontaneous
  Country: US (occurrence: US)
  Receive Date: 20161115
  Receipt Date: 20161115
  Transmission Date: 20170207
  Serious: No
  Sender: FDA-Public Use
  Company Number: US-ROCHE-1712979

PATIENT
  Sex: Male
  Weight: 78.09 kg

DRUGS (3)
  1. TAMIFLU [Suspect]
     Active Substance: OSELTAMIVIR PHOSPHATE
     Indication: INFLUENZA
     Dosage: 1 CAPSULE TWO TIMES A DAY; 5 DAY COURSE
     Route: 048
     Dates: start: 20160126, end: 20160131
  2. TAMIFLU [Suspect]
     Active Substance: OSELTAMIVIR PHOSPHATE
     Indication: INFLUENZA
  3. VALTREX [Concomitant]
     Active Substance: VALACYCLOVIR HYDROCHLORIDE
     Indication: ORAL HERPES
     Route: 048
     Dates: start: 20160126, end: 20160127

REACTIONS (6)
  - Drug ineffective [Unknown]
  - Disease progression [Recovered/Resolved]
  - Rash [Recovered/Resolved]
  - Discomfort [Unknown]
  - Oropharyngeal pain [Recovered/Resolved]
  - Agitation [Recovered/Resolved]
